FAERS Safety Report 15175803 (Version 2)
Quarter: 2019Q4

REPORT INFORMATION
  Report Type: Report from Study
  Country: BR (occurrence: BR)
  Receive Date: 20180720
  Receipt Date: 20191022
  Transmission Date: 20200122
  Serious: Yes (Hospitalization, Other)
  Sender: FDA-Public Use
  Company Number: BR-ELI_LILLY_AND_COMPANY-BR201807008474

PATIENT
  Age: 63 Year
  Sex: Male

DRUGS (5)
  1. CETUXIMAB. [Suspect]
     Active Substance: CETUXIMAB
     Indication: COLORECTAL CANCER METASTATIC
     Dosage: ONCE IN TWO WEEKS (EVERY FOURTEEN DAYS), INFUSION PUMP FOR 48 HOURS
     Route: 042
     Dates: start: 20160826, end: 20180507
  2. CETUXIMAB. [Suspect]
     Active Substance: CETUXIMAB
     Dosage: ONCE IN TWO WEEKS (EVERY FOURTEEN DAYS), INFUSION PUMP FOR 48 HOURS
     Route: 042
     Dates: start: 20190924
  3. FLUOROURACIL. [Concomitant]
     Active Substance: FLUOROURACIL
     Indication: COLORECTAL CANCER METASTATIC
     Dosage: UNK, UNKNOWN
     Route: 065
  4. IRINOTECAN [Concomitant]
     Active Substance: IRINOTECAN
     Indication: COLORECTAL CANCER METASTATIC
     Dosage: UNK, UNKNOWN
     Route: 065
  5. FOLINIC ACID [Concomitant]
     Active Substance: LEUCOVORIN
     Indication: COLORECTAL CANCER METASTATIC
     Dosage: UNK, UNKNOWN
     Route: 065

REACTIONS (7)
  - Diarrhoea [Recovering/Resolving]
  - Immunodeficiency [Recovering/Resolving]
  - Nail infection [Recovering/Resolving]
  - Off label use [Unknown]
  - Weight decreased [Recovering/Resolving]
  - Asthenia [Recovering/Resolving]
  - Bacterial infection [Recovering/Resolving]

NARRATIVE: CASE EVENT DATE: 2018
